FAERS Safety Report 21618702 (Version 2)
Quarter: 2022Q4

REPORT INFORMATION
  Report Type: Report from Study
  Country: US (occurrence: US)
  Receive Date: 20221119
  Receipt Date: 20221206
  Transmission Date: 20230113
  Serious: No
  Sender: FDA-Public Use
  Company Number: US-ABBVIE-4193875

PATIENT
  Sex: Male
  Weight: 100.24 kg

DRUGS (8)
  1. HUMIRA [Suspect]
     Active Substance: ADALIMUMAB
     Indication: Psoriatic arthropathy
     Dosage: FORM STRENGTH: 40 MG ?CF
     Route: 058
     Dates: start: 2016, end: 202003
  2. HUMIRA [Suspect]
     Active Substance: ADALIMUMAB
     Dosage: FORM STRENGTH: 40 MG?CF
     Route: 058
     Dates: start: 202206
  3. AMLODIPINE [Concomitant]
     Active Substance: AMLODIPINE BESYLATE
     Indication: Blood pressure measurement
  4. LOSARTAN [Concomitant]
     Active Substance: LOSARTAN
     Indication: Blood cholesterol
  5. PRALUENT [Concomitant]
     Active Substance: ALIROCUMAB
     Indication: Blood cholesterol
  6. TAMSULOSIN [Concomitant]
     Active Substance: TAMSULOSIN
     Indication: Product used for unknown indication
  7. FENOFIBRATE [Concomitant]
     Active Substance: FENOFIBRATE
     Indication: Blood cholesterol
  8. PRALUENT [Concomitant]
     Active Substance: ALIROCUMAB
     Indication: Blood cholesterol
     Dosage: PEN

REACTIONS (5)
  - Arthralgia [Recovered/Resolved]
  - Skin disorder [Unknown]
  - Drug ineffective [Not Recovered/Not Resolved]
  - Psoriasis [Not Recovered/Not Resolved]
  - Arthritis [Recovering/Resolving]

NARRATIVE: CASE EVENT DATE: 20200101
